FAERS Safety Report 5786301-3 (Version None)
Quarter: 2008Q2

REPORT INFORMATION
  Report Type: 
  Country: None (occurrence: None)
  Receive Date: 20080624
  Receipt Date: 20070720
  Transmission Date: 20081010
  Serious: No
  Sender: FDA-Public Use
  Company Number: US-ASTRAZENECA-2007UW17109

PATIENT
  Age: 18 Year
  Sex: Male

DRUGS (1)
  1. PULMICORT-100 [Suspect]
     Route: 055

REACTIONS (2)
  - COUGH [None]
  - RHINORRHOEA [None]
